FAERS Safety Report 4632135-2 (Version None)
Quarter: 2005Q2

REPORT INFORMATION
  Report Type: 
  Country: None (occurrence: None)
  Receive Date: 20050401
  Receipt Date: 20040420
  Transmission Date: 20051028
  Serious: No
  Sender: FDA-Public Use
  Company Number: 04P-163-0256643-00

PATIENT
  Sex: 0

DRUGS (2)
  1. DEPAKOTE [Suspect]
     Dosage: 1500 MG, 1 IN 1 D
  2. CLOZAPINE [Suspect]

REACTIONS (1)
  - AGRANULOCYTOSIS [None]
